FAERS Safety Report 9209136 (Version 1)
Quarter: 2013Q2

REPORT INFORMATION
  Report Type: Spontaneous
  Country: US (occurrence: None)
  Receive Date: 20130403
  Receipt Date: 20130403
  Transmission Date: 20140414
  Serious: Yes (Death)
  Sender: FDA-Public Use
  Company Number: None

PATIENT
  Age: 59 Year
  Sex: Female

DRUGS (1)
  1. SUTENT 50MG [Suspect]
     Dosage: X28 D, OFF 14 D
     Route: 048

REACTIONS (1)
  - Disease progression [None]
